FAERS Safety Report 15620882 (Version 1)
Quarter: 2018Q4

REPORT INFORMATION
  Report Type: Spontaneous
  Country: US (occurrence: US)
  Receive Date: 20181115
  Receipt Date: 20181115
  Transmission Date: 20190205
  Serious: No
  Sender: FDA-Public Use
  Company Number: US-SA-2018SA312633

PATIENT
  Age: 41 Year
  Sex: Male

DRUGS (8)
  1. ELIDEL [Concomitant]
     Active Substance: PIMECROLIMUS
  2. BENAZEPRIL [Concomitant]
     Active Substance: BENAZEPRIL HYDROCHLORIDE
  3. DUPIXENT [Suspect]
     Active Substance: DUPILUMAB
     Indication: DERMATITIS ATOPIC
     Dosage: UNK
     Route: 058
     Dates: start: 201810
  4. CLOBETASOL [Concomitant]
     Active Substance: CLOBETASOL
  5. ECONAZOLE. [Concomitant]
     Active Substance: ECONAZOLE NITRATE
  6. EPICERAM [Concomitant]
     Active Substance: DEVICE
  7. FLUCONAZOLE. [Concomitant]
     Active Substance: FLUCONAZOLE
  8. TRIAMCINOLON [TRIAMCINOLONE] [Concomitant]

REACTIONS (1)
  - Hordeolum [Recovered/Resolved]

NARRATIVE: CASE EVENT DATE: 20181015
